FAERS Safety Report 7337973-3 (Version None)
Quarter: 2011Q1

REPORT INFORMATION
  Report Type: 
  Country: None (occurrence: None)
  Receive Date: 20110308
  Receipt Date: 20110222
  Transmission Date: 20110831
  Serious: Yes (Other)
  Sender: FDA-Public Use
  Company Number: US-AMGEN-USASP2011010173

PATIENT
  Age: 46 Year
  Sex: Female

DRUGS (2)
  1. ENBREL [Suspect]
     Indication: RHEUMATOID ARTHRITIS
     Dosage: 50 MG, QWK
     Dates: start: 20041201
  2. ENBREL [Suspect]
     Indication: SPONDYLITIS

REACTIONS (3)
  - RADICULOPATHY [None]
  - FALL [None]
  - INTERVERTEBRAL DISC DEGENERATION [None]
